FAERS Safety Report 7868394-2 (Version None)
Quarter: 2011Q4

REPORT INFORMATION
  Report Type: 
  Country: None (occurrence: None)
  Receive Date: 20111028
  Receipt Date: 20101221
  Transmission Date: 20120403
  Serious: No
  Sender: FDA-Public Use
  Company Number: US-AMGEN-TCS430130

PATIENT
  Age: 63 Year
  Sex: Male
  Weight: 94.785 kg

DRUGS (11)
  1. PREDNISONE [Concomitant]
     Dosage: UNK
  2. METOCLOPRAMIDE [Concomitant]
     Dosage: UNK
  3. ENBREL [Suspect]
     Indication: RHEUMATOID ARTHRITIS
     Dosage: 50 MG, QWK
     Route: 058
     Dates: start: 20100511
  4. METFORMIN [Concomitant]
     Dosage: UNK
  5. ESTROGENS CONJUGATED [Concomitant]
     Dosage: UNK
  6. ZOSTAVAX [Suspect]
     Dosage: UNK
     Dates: start: 20100101
  7. OMEPRAZOLE [Concomitant]
     Dosage: UNK
  8. HYDROCODONE BITARTRATE [Concomitant]
     Dosage: UNK
  9. ATENOLOL [Concomitant]
     Dosage: UNK
  10. INSULIN [Concomitant]
     Dosage: UNK
  11. MONTELUKAST SODIUM [Concomitant]
     Dosage: UNK

REACTIONS (6)
  - ADVERSE DRUG REACTION [None]
  - INJECTION SITE URTICARIA [None]
  - ALOPECIA [None]
  - INJECTION SITE REACTION [None]
  - OEDEMA PERIPHERAL [None]
  - SKIN REACTION [None]
